FAERS Safety Report 25135039 (Version 1)
Quarter: 2025Q1

REPORT INFORMATION
  Report Type: Spontaneous
  Country: US (occurrence: US)
  Receive Date: 20250328
  Receipt Date: 20250328
  Transmission Date: 20250409
  Serious: No
  Sender: PFIZER
  Company Number: US-PFIZER INC-PV202500036780

PATIENT
  Age: 63 Year
  Sex: Female

DRUGS (1)
  1. TUKYSA [Suspect]
     Active Substance: TUCATINIB
     Dosage: 150 MG, TWO TABLETS TWICE A DAY.

REACTIONS (3)
  - Blood test abnormal [Unknown]
  - Hepatic function abnormal [Unknown]
  - Nausea [Unknown]
